FAERS Safety Report 22092369 (Version 2)
Quarter: 2023Q1

REPORT INFORMATION
  Report Type: Spontaneous
  Country: NL (occurrence: NL)
  Receive Date: 20230314
  Receipt Date: 20230320
  Transmission Date: 20230418
  Serious: Yes (Life-Threatening, Hospitalization, Other)
  Sender: FDA-Public Use
  Company Number: NL-002147023-NVSC2023NL047772

PATIENT
  Sex: Female
  Weight: 65 kg

DRUGS (6)
  1. IMATINIB [Suspect]
     Active Substance: IMATINIB
     Indication: Chronic myeloid leukaemia
     Dosage: 400 MILLIGRAM, ONCE A DAY
     Route: 065
     Dates: start: 202111
  2. IMATINIB [Suspect]
     Active Substance: IMATINIB
     Dosage: UNK
     Route: 065
     Dates: start: 20211101, end: 20220927
  3. IMATINIB [Suspect]
     Active Substance: IMATINIB
     Dosage: 600 MG
     Route: 065
     Dates: start: 202206, end: 202209
  4. IMATINIB [Suspect]
     Active Substance: IMATINIB
     Dosage: 600 MG
     Route: 065
     Dates: start: 202209
  5. IMATINIB [Suspect]
     Active Substance: IMATINIB
     Dosage: 600 MILLIGRAM
     Route: 065
     Dates: start: 202106
  6. BOSUTINIB [Suspect]
     Active Substance: BOSUTINIB
     Indication: Chronic myeloid leukaemia
     Dosage: UNK
     Route: 065
     Dates: start: 20230125, end: 20230223

REACTIONS (2)
  - Blast crisis in myelogenous leukaemia [Recovering/Resolving]
  - Cytogenetic analysis abnormal [Recovering/Resolving]

NARRATIVE: CASE EVENT DATE: 20220501
